FAERS Safety Report 8564706-5 (Version None)
Quarter: 2012Q3

REPORT INFORMATION
  Report Type: 
  Country: None (occurrence: None)
  Receive Date: 20120803
  Receipt Date: 20120801
  Transmission Date: 20120928
  Serious: Yes (Other)
  Sender: FDA-Public Use
  Company Number: US-AMGEN-USASP2011012573

PATIENT
  Age: 61 Year
  Sex: Male

DRUGS (4)
  1. RAPTIVA [Concomitant]
     Indication: PSORIASIS
     Dosage: UNK
  2. ENBREL [Suspect]
     Indication: PSORIASIS
     Dosage: UNK
     Dates: start: 20070201, end: 20080801
  3. METHOTREXATE [Concomitant]
     Dosage: UNK
  4. HUMIRA [Concomitant]
     Indication: PSORIASIS
     Dosage: UNK
     Dates: start: 20080901

REACTIONS (7)
  - DIVERTICULITIS [None]
  - DYSPHONIA [None]
  - HYPERSENSITIVITY [None]
  - MIGRAINE [None]
  - PSORIASIS [None]
  - PLATELET DISORDER [None]
  - CHRONIC OBSTRUCTIVE PULMONARY DISEASE [None]
